FAERS Safety Report 7353086-9 (Version None)
Quarter: 2011Q1

REPORT INFORMATION
  Report Type: 
  Country: None (occurrence: None)
  Receive Date: 20110315
  Receipt Date: 20110308
  Transmission Date: 20110831
  Serious: Yes (Other)
  Sender: FDA-Public Use
  Company Number: TW-ROCHE-764119

PATIENT
  Age: 56 Year
  Sex: Female

DRUGS (3)
  1. MIRCERA [Suspect]
     Route: 058
     Dates: start: 20100801, end: 20110201
  2. RECORMON [Suspect]
     Route: 058
     Dates: end: 20100701
  3. RECORMON [Suspect]
     Route: 058
     Dates: start: 20110201

REACTIONS (1)
  - APLASIA PURE RED CELL [None]
